FAERS Safety Report 16863652 (Version 1)
Quarter: 2019Q3

REPORT INFORMATION
  Report Type: Spontaneous
  Country: CD (occurrence: CD)
  Receive Date: 20190927
  Receipt Date: 20190927
  Transmission Date: 20191005
  Serious: Yes (Death, Hospitalization, Congenital Anomaly, Other)
  Sender: FDA-Public Use
  Company Number: PHHY2019CD224816

PATIENT
  Age: 4 Hour
  Sex: Male

DRUGS (1)
  1. METFORMIN HYDROCHLORIDE. [Suspect]
     Active Substance: METFORMIN HYDROCHLORIDE
     Indication: FOETAL EXPOSURE DURING PREGNANCY
     Dosage: UNK
     Route: 064

REACTIONS (9)
  - Neonatal respiratory distress syndrome [Fatal]
  - Cleft palate [Fatal]
  - Pierre Robin syndrome [Fatal]
  - Cyanosis neonatal [Fatal]
  - Glossoptosis [Fatal]
  - Micrognathia [Fatal]
  - Heart disease congenital [Fatal]
  - Cardio-respiratory arrest neonatal [Fatal]
  - Foetal exposure during pregnancy [Unknown]
